FAERS Safety Report 6596369-2 (Version None)
Quarter: 2010Q1

REPORT INFORMATION
  Report Type: 
  Country: None (occurrence: None)
  Receive Date: 20100223
  Receipt Date: 20100217
  Transmission Date: 20100710
  Serious: Yes (Death)
  Sender: FDA-Public Use
  Company Number: DE-ROCHE-686423

PATIENT
  Sex: Male

DRUGS (1)
  1. XELODA [Suspect]
     Route: 048
     Dates: start: 20091109

REACTIONS (2)
  - DYSPHONIA [None]
  - MALIGNANT NEOPLASM PROGRESSION [None]
